FAERS Safety Report 5763898-0 (Version None)
Quarter: 2008Q2

REPORT INFORMATION
  Report Type: 
  Country: None (occurrence: None)
  Receive Date: 20080606
  Receipt Date: 20080606
  Transmission Date: 20081010
  Serious: Yes (Hospitalization, Other)
  Sender: FDA-Public Use
  Company Number: None

PATIENT
  Age: 17 Year
  Sex: Male
  Weight: 55 kg

DRUGS (10)
  1. ACYCLOVIR [Suspect]
     Indication: MENINGOENCEPHALITIS HERPETIC
     Dosage: 20MG/KG Q8 IV DRIP
     Route: 041
     Dates: start: 20080528, end: 20080604
  2. VANCOMYCIN [Concomitant]
  3. CEFTRIAXONE [Concomitant]
  4. GADOPENTETATE [Concomitant]
  5. PHENYTOIN [Concomitant]
  6. FOSPHENYTOIN [Concomitant]
  7. CLONAZEPAM [Concomitant]
  8. CLONIDINE [Concomitant]
  9. NIFEDIPINE [Concomitant]
  10. OXCARBAZEPINE [Concomitant]

REACTIONS (1)
  - RENAL FAILURE ACUTE [None]
